FAERS Safety Report 9855814 (Version 1)
Quarter: 2014Q1

REPORT INFORMATION
  Report Type: Spontaneous
  Country: JP (occurrence: JP)
  Receive Date: 20140130
  Receipt Date: 20140130
  Transmission Date: 20141002
  Serious: Yes (Other)
  Sender: FDA-Public Use
  Company Number: PHHY2014JP009314

PATIENT
  Sex: Female

DRUGS (7)
  1. CO-DIOVAN [Suspect]
     Dosage: UNK UKN, UNK
     Route: 048
  2. CO-DIOVAN [Suspect]
     Dosage: UNK UKN, UNK
     Route: 048
  3. DIOVAN [Suspect]
     Dosage: 80 MG, DAILY (AT NIGHT)
     Route: 048
  4. DIOVAN [Suspect]
     Dosage: 40 MG, DAILY
     Route: 048
  5. NEORAL [Suspect]
     Indication: MYASTHENIA GRAVIS
     Dosage: UNK UKN, UNK
     Route: 048
  6. STEROID ANTIBACTERIALS [Concomitant]
     Indication: MYASTHENIA GRAVIS
     Route: 048
  7. FLUITRAN [Concomitant]
     Dosage: UNK UKN, UNK
     Route: 048

REACTIONS (8)
  - Myasthenia gravis [Unknown]
  - Muscle spasms [Unknown]
  - Blood pressure fluctuation [Unknown]
  - Hypoaesthesia [Unknown]
  - Hearing impaired [Recovered/Resolved]
  - Tympanic membrane disorder [Unknown]
  - Dry eye [Unknown]
  - Headache [Unknown]
